FAERS Safety Report 20980869 (Version 1)
Quarter: 2022Q2

REPORT INFORMATION
  Report Type: Spontaneous
  Country: CN (occurrence: CN)
  Receive Date: 20220620
  Receipt Date: 20220620
  Transmission Date: 20220721
  Serious: Yes (Hospitalization, Other)
  Sender: FDA-Public Use
  Company Number: None

PATIENT
  Age: 42 Year
  Sex: Female
  Weight: 50 kg

DRUGS (11)
  1. CYCLOPHOSPHAMIDE [Suspect]
     Active Substance: CYCLOPHOSPHAMIDE
     Indication: Systemic lupus erythematosus
     Dosage: 0.200000 G TWICE DAILY, SODIUM CHLORIDE INJECTION (40ML) + CYCLOPHOSPHAMIDE (0.2G)
     Route: 042
     Dates: start: 20220501
  2. CYCLOPHOSPHAMIDE [Suspect]
     Active Substance: CYCLOPHOSPHAMIDE
     Dosage: 0.200000 G TWICE DAILY, SODIUM CHLORIDE INJECTION (40ML) + CYCLOPHOSPHAMIDE (0.2G)
     Route: 042
     Dates: start: 20220503
  3. CYCLOPHOSPHAMIDE [Suspect]
     Active Substance: CYCLOPHOSPHAMIDE
     Dosage: 0.200000 G TWICE DAILY, SODIUM CHLORIDE INJECTION (40ML) + CYCLOPHOSPHAMIDE (0.2G)
     Route: 042
     Dates: start: 20220505, end: 20220505
  4. CYCLOPHOSPHAMIDE [Suspect]
     Active Substance: CYCLOPHOSPHAMIDE
     Dosage: UNK,DOSE RE INTRODUCED,SODIUM CHLORIDE INJECTION + CYCLOPHOSPHAMIDE
     Route: 042
  5. SODIUM CHLORIDE [Suspect]
     Active Substance: SODIUM CHLORIDE
     Indication: Medication dilution
     Dosage: 40 UNK, BID, SODIUM CHLORIDE INJECTION (40ML) + CYCLOPHOSPHAMIDE (0.2G)
     Route: 042
     Dates: start: 20220501
  6. SODIUM CHLORIDE [Suspect]
     Active Substance: SODIUM CHLORIDE
     Dosage: 40 UNK, BID, SODIUM CHLORIDE INJECTION (40ML) + CYCLOPHOSPHAMIDE (0.2G)
     Route: 042
     Dates: start: 20220503
  7. SODIUM CHLORIDE [Suspect]
     Active Substance: SODIUM CHLORIDE
     Dosage: 40 UNK, BID, SODIUM CHLORIDE INJECTION (40ML) + CYCLOPHOSPHAMIDE (0.2G)
     Route: 042
     Dates: start: 20220505, end: 20220505
  8. SODIUM CHLORIDE [Suspect]
     Active Substance: SODIUM CHLORIDE
     Dosage: UNK, DOSE RE INTRODUCED, SODIUM CHLORIDE INJECTION  + CYCLOPHOSPHAMIDE
     Route: 042
  9. SULFAMETHOXAZOLE [Concomitant]
     Active Substance: SULFAMETHOXAZOLE
     Indication: Pneumonia
     Dosage: 3.000000 TABLETS 4 TIMES A DAY
     Route: 048
     Dates: start: 20220506, end: 20220519
  10. FLUCONAZOLE [Concomitant]
     Active Substance: FLUCONAZOLE
     Indication: Fungal infection
     Dosage: 0.400000 G ONCE DAILY
     Route: 041
     Dates: start: 20220501, end: 20220504
  11. GANCICLOVIR [Concomitant]
     Active Substance: GANCICLOVIR
     Indication: Pneumocystis jirovecii infection
     Dosage: 0.250000 G TWICE DAILY
     Route: 041
     Dates: start: 20220507, end: 20220519

REACTIONS (4)
  - Condition aggravated [Unknown]
  - Condition aggravated [Unknown]
  - Bicytopenia [Unknown]
  - Thrombocytopenia [Unknown]

NARRATIVE: CASE EVENT DATE: 20220506
